FAERS Safety Report 8283602-4 (Version None)
Quarter: 2012Q2

REPORT INFORMATION
  Report Type: 
  Country: None (occurrence: None)
  Receive Date: 20120413
  Receipt Date: 20120412
  Transmission Date: 20120825
  Serious: Yes (Other)
  Sender: FDA-Public Use
  Company Number: CA-ABBOTT-12P-028-0918156-00

PATIENT
  Sex: Male
  Weight: 88.53 kg

DRUGS (1)
  1. HUMIRA [Suspect]
     Indication: ANKYLOSING SPONDYLITIS
     Route: 058
     Dates: start: 20110428

REACTIONS (5)
  - LYMPHOMA [None]
  - LEUKAEMIA [None]
  - ABDOMINAL PAIN [None]
  - SPLENOMEGALY [None]
  - HEPATOMEGALY [None]
